FAERS Safety Report 7668638-6 (Version None)
Quarter: 2011Q3

REPORT INFORMATION
  Report Type: 
  Country: None (occurrence: None)
  Receive Date: 20110808
  Receipt Date: 20110808
  Transmission Date: 20111222
  Serious: Yes (Life-Threatening, Hospitalization)
  Sender: FDA-Public Use
  Company Number: None

PATIENT
  Age: 66 Year
  Sex: Male
  Weight: 77.11 kg

DRUGS (1)
  1. CHANTIX [Suspect]
     Indication: SMOKING CESSATION THERAPY
     Dosage: AS PRESCRIBED ON STARTER PACK
     Route: 048
     Dates: start: 20070904, end: 20071210

REACTIONS (3)
  - CARDIAC DISORDER [None]
  - UNEVALUABLE EVENT [None]
  - SUICIDAL IDEATION [None]
